FAERS Safety Report 5674168-3 (Version None)
Quarter: 2008Q1

REPORT INFORMATION
  Report Type: 
  Country: None (occurrence: None)
  Receive Date: 20080320
  Receipt Date: 20080314
  Transmission Date: 20080703
  Serious: Yes (Hospitalization, Other)
  Sender: FDA-Public Use
  Company Number: US-BRISTOL-MYERS SQUIBB COMPANY-14115703

PATIENT
  Age: 51 Year
  Sex: Male
  Weight: 61 kg

DRUGS (3)
  1. CETUXIMAB [Suspect]
     Indication: SQUAMOUS CELL CARCINOMA
     Dosage: LOADING DOSE GIVEN ON 7FEB08 WITH WEEKLY DOSE STARTING ON 12FEB08, FIRST COURSE ON 07FEB08
     Dates: start: 20080310, end: 20080310
  2. CISPLATIN [Suspect]
     Indication: SQUAMOUS CELL CARCINOMA
     Dosage: FIRST DOSE GIVEN ON 07-FEB-08
     Dates: start: 20080303, end: 20080303
  3. RADIATION THERAPY [Suspect]
     Indication: SQUAMOUS CELL CARCINOMA
     Dosage: 1 DOSAGE FORM: 50 GY; NO. OF FRACTIONS: 35.
     Dates: start: 20080212, end: 20080212

REACTIONS (5)
  - BLOOD UREA [None]
  - DEHYDRATION [None]
  - HYPERGLYCAEMIA [None]
  - HYPOALBUMINAEMIA [None]
  - HYPOCALCAEMIA [None]
